FAERS Safety Report 11343431 (Version 3)
Quarter: 2015Q4

REPORT INFORMATION
  Report Type: Spontaneous
  Country: GB (occurrence: GB)
  Receive Date: 20150806
  Receipt Date: 20151003
  Transmission Date: 20160304
  Serious: Yes (Disabling)
  Sender: FDA-Public Use
  Company Number: GB-ACCORD-032598

PATIENT
  Age: 70 Year
  Sex: Male
  Weight: 104 kg

DRUGS (1)
  1. ALLOPURINOL/ALLOPURINOL SODIUM [Suspect]
     Active Substance: ALLOPURINOL SODIUM
     Indication: GOUT
     Route: 048
     Dates: start: 20150619, end: 20150722

REACTIONS (3)
  - Hyperhidrosis [Unknown]
  - Somnolence [Recovered/Resolved]
  - Lethargy [Recovered/Resolved]

NARRATIVE: CASE EVENT DATE: 20150715
